FAERS Safety Report 12529753 (Version 5)
Quarter: 2016Q3

REPORT INFORMATION
  Report Type: Spontaneous
  Country: US (occurrence: US)
  Receive Date: 20160706
  Receipt Date: 20160808
  Transmission Date: 20161109
  Serious: No
  Sender: FDA-Public Use
  Company Number: US-BEH-2016057680

PATIENT
  Sex: Male
  Weight: 83 kg

DRUGS (13)
  1. HIZENTRA [Suspect]
     Active Substance: HUMAN IMMUNOGLOBULIN G
     Indication: IMMUNODEFICIENCY
     Route: 058
  2. HIZENTRA [Suspect]
     Active Substance: HUMAN IMMUNOGLOBULIN G
     Route: 058
  3. ANTIDEPRESSANTS [Concomitant]
     Active Substance: UNSPECIFIED INGREDIENT
  4. IBUPROFEN. [Concomitant]
     Active Substance: IBUPROFEN
  5. BIAXIN [Concomitant]
     Active Substance: CLARITHROMYCIN
  6. LEVAQUIN [Concomitant]
     Active Substance: LEVOFLOXACIN
  7. NIACIN FLUSH FREE [Concomitant]
  8. LIPITOR [Concomitant]
     Active Substance: ATORVASTATIN CALCIUM
  9. PROVENTIL [Concomitant]
     Active Substance: ALBUTEROL
  10. TOBRAMYCIN-DEXAMETHASONE [Concomitant]
     Active Substance: DEXAMETHASONE\TOBRAMYCIN
  11. FISH OIL [Concomitant]
     Active Substance: FISH OIL
  12. EPIPEN [Concomitant]
     Active Substance: EPINEPHRINE
  13. ASPIRIN. [Concomitant]
     Active Substance: ASPIRIN

REACTIONS (1)
  - Bronchitis [Unknown]
